FAERS Safety Report 8189087 (Version 5)
Quarter: 2013Q2

REPORT INFORMATION
  Report Type: Report from Study
  Country: DE (occurrence: DE)
  Receive Date: 20111019
  Receipt Date: 20130506
  Transmission Date: 20140414
  Serious: Yes (Hospitalization)
  Sender: FDA-Public Use
  Company Number: DE-BRISTOL-MYERS SQUIBB COMPANY-16166738

PATIENT
  Age: 67 Year
  Sex: Female
  Weight: 52 kg

DRUGS (6)
  1. CISPLATIN [Suspect]
     Indication: NON-SMALL CELL LUNG CANCER
     Dosage: LAST DOSE ON 27SEP2011?NO OF INF:1
     Route: 042
     Dates: start: 20110920
  2. GEMCITABINE HCL [Suspect]
     Indication: NON-SMALL CELL LUNG CANCER
     Dosage: LAST RECIVED ON27SEP11.?NO OF INF:2
     Route: 042
     Dates: start: 20110920
  3. NECITUMUMAB [Suspect]
     Indication: NON-SMALL CELL LUNG CANCER
     Dosage: LAST RECIVED ON27SEP11.?NO OF INF:2
     Route: 042
     Dates: start: 20110920
  4. SALBUTAMOL SULFATE [Concomitant]
     Dates: start: 20110909
  5. IPRATROPIUM BROMIDE [Concomitant]
     Dates: start: 20110909
  6. ZOPICLONE [Concomitant]
     Indication: INSOMNIA
     Dates: start: 20110927

REACTIONS (1)
  - Renal infarct [Recovered/Resolved]
